FAERS Safety Report 9112896 (Version 1)
Quarter: 2013Q1

REPORT INFORMATION
  Report Type: Spontaneous
  Country: US (occurrence: US)
  Receive Date: 20130211
  Receipt Date: 20130211
  Transmission Date: 20140127
  Serious: Yes (Hospitalization, Other)
  Sender: FDA-Public Use
  Company Number: US-009507513-1104USA04144

PATIENT
  Sex: Female
  Weight: 83.94 kg

DRUGS (7)
  1. FOSAMAX [Suspect]
     Indication: OSTEOPOROSIS
     Route: 048
     Dates: start: 19971014, end: 20101004
  2. FOSAMAX [Suspect]
     Dosage: 10 MG, QD
     Route: 048
     Dates: start: 19971014
  3. FOSAMAX [Suspect]
     Dosage: 70 MG, QW
     Route: 048
  4. CALCIUM (UNSPECIFIED) [Concomitant]
  5. PREMARIN [Concomitant]
     Dosage: 0.625 MG, QD
     Dates: start: 19970902
  6. FOSAMAX [Suspect]
     Indication: OSTEOPOROSIS
     Dosage: 70 MG, UNK
     Route: 048
  7. PRAVASTATIN SODIUM [Concomitant]
     Indication: HYPERLIPIDAEMIA

REACTIONS (65)
  - Malignant melanoma [Unknown]
  - Femur fracture [Recovering/Resolving]
  - Oestrogen deficiency [Unknown]
  - Bladder repair [Unknown]
  - Lumbar spinal stenosis [Unknown]
  - Spinal osteoarthritis [Unknown]
  - Intervertebral disc disorder [Unknown]
  - Neuropathy peripheral [Unknown]
  - Chest pain [Unknown]
  - Melanosis coli [Unknown]
  - Colitis [Unknown]
  - Haemorrhoids [Unknown]
  - Carpal tunnel syndrome [Not Recovered/Not Resolved]
  - Rotator cuff syndrome [Recovering/Resolving]
  - Carotid artery stenosis [Unknown]
  - Dizziness [Unknown]
  - Diabetes mellitus [Unknown]
  - Thyroid disorder [Unknown]
  - Parathyroid disorder [Unknown]
  - Nephropathy [Unknown]
  - Haemorrhoids [Unknown]
  - Mucosal inflammation [Unknown]
  - Bursitis [Unknown]
  - Breast pain [Unknown]
  - Diverticulum [Unknown]
  - Haemorrhoids [Unknown]
  - Large intestine polyp [Unknown]
  - Syncope [Unknown]
  - Pulmonary mass [Unknown]
  - Cardiomegaly [Not Recovered/Not Resolved]
  - Coronary artery disease [Unknown]
  - Tonsillar disorder [Unknown]
  - Hypertension [Unknown]
  - Gallbladder cholesterolosis [Unknown]
  - Cholelithiasis [Unknown]
  - Cholecystitis chronic [Not Recovered/Not Resolved]
  - Haemorrhoids [Unknown]
  - Haemorrhoids [Unknown]
  - Tooth fracture [Unknown]
  - Palpitations [Unknown]
  - Stress fracture [Unknown]
  - Joint lock [Unknown]
  - Osteoarthritis [Unknown]
  - Syncope [Unknown]
  - Fall [Unknown]
  - Fall [Unknown]
  - Fall [Unknown]
  - Head injury [Unknown]
  - Pain [Unknown]
  - Depression [Unknown]
  - Supraventricular extrasystoles [Unknown]
  - Dizziness [Unknown]
  - Gastrooesophageal reflux disease [Unknown]
  - Tendon disorder [Unknown]
  - Joint effusion [Unknown]
  - Spinal osteoarthritis [Unknown]
  - Lung hyperinflation [Unknown]
  - Osteoarthritis [Unknown]
  - Skeletal injury [Unknown]
  - Syncope [Unknown]
  - Mitral valve incompetence [Unknown]
  - Pericardial effusion [Unknown]
  - Vitamin D deficiency [Unknown]
  - Calcium deficiency [Unknown]
  - Cataract [Unknown]
